FAERS Safety Report 5168119-8 (Version None)
Quarter: 2006Q4

REPORT INFORMATION
  Report Type: 
  Country: None (occurrence: None)
  Receive Date: 20061208
  Receipt Date: 20061130
  Transmission Date: 20070319
  Serious: Yes (Other)
  Sender: FDA-Public Use
  Company Number: 2006UW27041

PATIENT
  Age: 85 Year
  Sex: Male
  Weight: 58 kg

DRUGS (5)
  1. ZOLADEX [Suspect]
     Indication: PROSTATE CANCER
     Route: 058
     Dates: start: 20060721
  2. ANDROCUR [Concomitant]
     Indication: PROSTATE CANCER
     Route: 048
     Dates: start: 20060701, end: 20060801
  3. NEULEPTIL [Concomitant]
     Indication: ANXIETY
     Route: 048
     Dates: start: 20061001
  4. ATROVENT [Concomitant]
     Route: 055
     Dates: start: 20061001
  5. FLUIMUCIL [Concomitant]
     Indication: NASOPHARYNGITIS
     Route: 048
     Dates: start: 20060401

REACTIONS (11)
  - ANGIOPATHY [None]
  - ARRHYTHMIA [None]
  - ARTHRALGIA [None]
  - DIARRHOEA [None]
  - DYSPEPSIA [None]
  - DYSURIA [None]
  - HEADACHE [None]
  - MUSCULOSKELETAL PAIN [None]
  - PAIN [None]
  - PAIN IN EXTREMITY [None]
  - SCROTAL IRRITATION [None]
